FAERS Safety Report 9264806 (Version 1)
Quarter: 2013Q2

REPORT INFORMATION
  Report Type: Spontaneous
  Country: US (occurrence: None)
  Receive Date: 20130430
  Receipt Date: 20130430
  Transmission Date: 20140414
  Serious: Yes (Other)
  Sender: FDA-Public Use
  Company Number: None

PATIENT
  Age: 83 Year
  Sex: Male

DRUGS (2)
  1. IMMUNE GLOBULIN [Suspect]
     Indication: TOXIC SHOCK SYNDROME
     Route: 042
     Dates: start: 20130419, end: 20130419
  2. OCTAGAM [Suspect]
     Dosage: 2 DOSES
     Dates: start: 20130420, end: 20130421

REACTIONS (2)
  - Hypoglycaemia [None]
  - Blood glucose increased [None]
